FAERS Safety Report 11776409 (Version 1)
Quarter: 2015Q4

REPORT INFORMATION
  Report Type: Spontaneous
  Country: ZA (occurrence: ZA)
  Receive Date: 20151125
  Receipt Date: 20151125
  Transmission Date: 20160304
  Serious: Yes (Disabling)
  Sender: FDA-Public Use
  Company Number: ZA-IPSEN BIOPHARMACEUTICALS, INC.-2015-08786

PATIENT
  Age: 46 Year
  Sex: Female

DRUGS (2)
  1. SOMATULINE AUTOGEL [Suspect]
     Active Substance: LANREOTIDE ACETATE
     Indication: ACROMEGALY
     Dosage: 30 MG
     Route: 065
     Dates: start: 201509, end: 2015
  2. DIOTROXIN [Concomitant]
     Indication: HYPOTHYROIDISM
     Dosage: NOT REPORTED
     Route: 065

REACTIONS (6)
  - Panic reaction [Recovered/Resolved]
  - Pyrexia [Recovered/Resolved]
  - Dyspnoea [Recovered/Resolved]
  - Pain [Recovered/Resolved]
  - Chills [Recovered/Resolved]
  - Diarrhoea [Recovered/Resolved]

NARRATIVE: CASE EVENT DATE: 201509
